FAERS Safety Report 13562419 (Version 1)
Quarter: 2017Q2

REPORT INFORMATION
  Report Type: Report from Study
  Country: None (occurrence: US)
  Receive Date: 20170519
  Receipt Date: 20170519
  Transmission Date: 20170830
  Serious: Yes (Other)
  Sender: FDA-Public Use
  Company Number: US-ABBVIE-17K-163-1874785-00

PATIENT
  Age: 36 Year
  Sex: Female

DRUGS (1)
  1. HUMIRA [Suspect]
     Active Substance: ADALIMUMAB
     Indication: RHEUMATOID ARTHRITIS
     Route: 058
     Dates: start: 201702, end: 201703

REACTIONS (9)
  - Fatigue [Unknown]
  - Nausea [Unknown]
  - Headache [Unknown]
  - Vocal cord cyst [Unknown]
  - Vocal cord paralysis [Unknown]
  - Urinary incontinence [Recovering/Resolving]
  - Drug ineffective [Unknown]
  - Hot flush [Unknown]
  - Productive cough [Recovering/Resolving]

NARRATIVE: CASE EVENT DATE: 2017
